FAERS Safety Report 10933673 (Version 1)
Quarter: 2015Q1

REPORT INFORMATION
  Report Type: Spontaneous
  Country: BR (occurrence: BR)
  Receive Date: 20150320
  Receipt Date: 20150320
  Transmission Date: 20150721
  Serious: Yes (Other)
  Sender: FDA-Public Use
  Company Number: BR-ROCHE-1551922

PATIENT
  Age: 48 Year
  Sex: Female
  Weight: 95 kg

DRUGS (2)
  1. RIVOTRIL [Suspect]
     Active Substance: CLONAZEPAM
     Indication: PANIC DISORDER
     Route: 065
  2. RIVOTRIL [Suspect]
     Active Substance: CLONAZEPAM
     Indication: DEPRESSION

REACTIONS (4)
  - Nervous system disorder [Unknown]
  - Weight abnormal [Unknown]
  - Herpes zoster [Unknown]
  - Product dropper issue [Unknown]

NARRATIVE: CASE EVENT DATE: 20150307
